FAERS Safety Report 8915523 (Version 1)
Quarter: 2012Q4

REPORT INFORMATION
  Report Type: 
  Country: US (occurrence: US)
  Receive Date: 20121119
  Receipt Date: 20121119
  Transmission Date: 20130627
  Serious: No
  Sender: FDA-Public Use
  Company Number: US-VERTEX PHARMACEUTICAL INC.-2012-024624

PATIENT
  Age: 48 Year
  Sex: Female
  Weight: 64 kg

DRUGS (8)
  1. VX-950 (TELAPREVIR) [Suspect]
     Indication: HEPATITIS C
     Dosage: 750 mg, tid
     Route: 048
  2. RIBAVIRIN [Concomitant]
     Indication: HEPATITIS C
     Dosage: 200 mg, UNK
     Route: 048
  3. PEGASYS [Concomitant]
     Indication: HEPATITIS C
     Dosage: 180 ?g, UNK
     Route: 058
  4. ZOLOFT [Concomitant]
     Dosage: 50 mg, UNK
     Route: 048
  5. PRILOSEC                           /00661201/ [Concomitant]
     Dosage: 20 mg, UNK
     Route: 048
  6. VITAMIN D /00107901/ [Concomitant]
     Dosage: 50000 ut, UNK
     Route: 048
  7. SEROQUEL [Concomitant]
     Dosage: 100 mg, UNK
     Route: 048
  8. OXYCONTIN [Concomitant]
     Dosage: 10 mg, UNK
     Route: 048

REACTIONS (5)
  - Influenza like illness [Unknown]
  - Headache [Unknown]
  - Diarrhoea [Unknown]
  - Dysgeusia [Unknown]
  - Nausea [Unknown]
